FAERS Safety Report 8337591-4 (Version None)
Quarter: 2012Q2

REPORT INFORMATION
  Report Type: 
  Country: None (occurrence: None)
  Receive Date: 20120504
  Receipt Date: 20120426
  Transmission Date: 20120825
  Serious: Yes (Hospitalization)
  Sender: FDA-Public Use
  Company Number: PHHY2012IT036146

PATIENT
  Sex: Male
  Weight: 77 kg

DRUGS (1)
  1. CERTICAN [Suspect]

REACTIONS (1)
  - AORTIC ANEURYSM [None]
